FAERS Safety Report 12590947 (Version 2)
Quarter: 2016Q3

REPORT INFORMATION
  Report Type: Spontaneous
  Country: US (occurrence: US)
  Receive Date: 20160726
  Receipt Date: 20160726
  Transmission Date: 20161109
  Serious: No
  Sender: FDA-Public Use
  Company Number: US-UNITED THERAPEUTICS-UNT-2015-015304

PATIENT
  Age: 67 Year
  Sex: Female
  Weight: 55.33 kg

DRUGS (1)
  1. REMODULIN [Suspect]
     Active Substance: TREPROSTINIL
     Indication: PULMONARY ARTERIAL HYPERTENSION
     Dosage: 0.009 ?G/KG/MIN, CONTINUING
     Route: 042
     Dates: start: 20151125

REACTIONS (3)
  - Dyspnoea [Unknown]
  - Muscle spasms [Unknown]
  - Thrombosis in device [Not Recovered/Not Resolved]

NARRATIVE: CASE EVENT DATE: 201511
